FAERS Safety Report 23857116 (Version 2)
Quarter: 2024Q2

REPORT INFORMATION
  Report Type: Other
  Country: FR (occurrence: None)
  Receive Date: 20240515
  Receipt Date: 20240604
  Transmission Date: 20240716
  Serious: Yes (Other)
  Sender: FDA-Public Use
  Company Number: FR-ROCHE-3561566

PATIENT

DRUGS (5)
  1. RIBAVIRIN [Suspect]
     Active Substance: RIBAVIRIN
     Indication: Hepatitis C
     Dosage: PILLS/DAY IF WEIGHT { 75 KG OR 6 PILLS/DAY IF WEIGHT }/= 75 KG FOR 12 WEEKS
     Route: 048
  2. SOFOSBUVIR [Suspect]
     Active Substance: SOFOSBUVIR
     Indication: Hepatitis C
     Dosage: 400 MG ONE PILL PER DAY
     Route: 048
  3. VELPATASVIR [Suspect]
     Active Substance: VELPATASVIR
     Indication: Hepatitis C
     Dosage: ONE PILL A DAY FOR 12 WEEKS
     Route: 048
  4. VOXILAPREVIR [Suspect]
     Active Substance: VOXILAPREVIR
     Indication: Hepatitis C
     Dosage: ONE PILL A DAY FOR 12 WEEKS
     Route: 048
  5. LEDIPASVIR [Suspect]
     Active Substance: LEDIPASVIR
     Indication: Hepatitis C
     Route: 065

REACTIONS (2)
  - Hypertension [Unknown]
  - Hypertension [Unknown]
